FAERS Safety Report 7571121 (Version 2)
Quarter: 2016Q4

REPORT INFORMATION
  Report Type: Report from Study
  Country: GB (occurrence: GB)
  Receive Date: 20100902
  Receipt Date: 20161103
  Transmission Date: 20170207
  Serious: Yes (Disabling, Other)
  Sender: FDA-Public Use
  Company Number: GB-ROCHE-723180

PATIENT

DRUGS (2)
  1. OXALIPLATIN. [Suspect]
     Active Substance: OXALIPLATIN
     Indication: COLORECTAL CANCER
     Dosage: OVER 2HOURS ON DAY 1 EVERY 21 DAYS FOR 8 ADJUVANT OR 6 PALLIATIVE CYCLES
     Route: 042
  2. CAPECITABINE. [Suspect]
     Active Substance: CAPECITABINE
     Indication: COLORECTAL CANCER
     Dosage: DAY 1-14 EVERY 21 DAYS FOR 8 ADJUVANT OR 6 PALLIATIVE CYCLES
     Route: 048

REACTIONS (4)
  - Myotonia [Unknown]
  - Neuropathy peripheral [Unknown]
  - Pseudoneurologic symptom [Unknown]
  - Visual impairment [Unknown]
